FAERS Safety Report 15116722 (Version 1)
Quarter: 2018Q3

REPORT INFORMATION
  Report Type: Report from Study
  Country: US (occurrence: US)
  Receive Date: 20180706
  Receipt Date: 20180706
  Transmission Date: 20181010
  Serious: Yes (Other)
  Sender: FDA-Public Use
  Company Number: US-TEVA-2018-US-918807

PATIENT
  Age: 55 Year
  Sex: Female
  Weight: 147 kg

DRUGS (21)
  1. LEVEMIR [Concomitant]
     Active Substance: INSULIN DETEMIR
  2. CLARITIN [Concomitant]
     Active Substance: LORATADINE
  3. VITAMIN D3?FOLIC ACID [Concomitant]
  4. LOTENSIN [Concomitant]
     Active Substance: BENAZEPRIL HYDROCHLORIDE
  5. LIORESAL [Concomitant]
     Active Substance: BACLOFEN
  6. COPAXONE [Suspect]
     Active Substance: GLATIRAMER ACETATE
     Indication: PRODUCT USED FOR UNKNOWN INDICATION
     Route: 058
     Dates: start: 201607, end: 201711
  7. AMPYRA [Suspect]
     Active Substance: DALFAMPRIDINE
     Indication: MULTIPLE SCLEROSIS
     Route: 048
     Dates: start: 20170825
  8. AMPYRA [Suspect]
     Active Substance: DALFAMPRIDINE
     Indication: GAIT DISTURBANCE
  9. VENTOLIN [Concomitant]
     Active Substance: ALBUTEROL SULFATE
  10. BUMEX [Concomitant]
     Active Substance: BUMETANIDE
  11. NEURONTIN [Concomitant]
     Active Substance: GABAPENTIN
  12. SYNTHROID [Concomitant]
     Active Substance: LEVOTHYROXINE SODIUM
  13. LANTUS [Concomitant]
     Active Substance: INSULIN GLARGINE
  14. ADVAIR HFA [Concomitant]
     Active Substance: FLUTICASONE PROPIONATE\SALMETEROL XINAFOATE
  15. ASPIRIN. [Concomitant]
     Active Substance: ASPIRIN
  16. GLUCOTROL [Concomitant]
     Active Substance: GLIPIZIDE
  17. AVONEX [Suspect]
     Active Substance: INTERFERON BETA-1A
     Indication: MULTIPLE SCLEROSIS
     Dosage: 30 MCG WEEKLY
     Route: 030
  18. JANUMET [Concomitant]
     Active Substance: METFORMIN HYDROCHLORIDE\SITAGLIPTIN PHOSPHATE
  19. CLINORIL [Concomitant]
     Active Substance: SULINDAC
  20. LEVOFLOXACIN. [Concomitant]
     Active Substance: LEVOFLOXACIN
  21. PRILOSEC [Concomitant]
     Active Substance: OMEPRAZOLE MAGNESIUM

REACTIONS (23)
  - Urinary retention [Not Recovered/Not Resolved]
  - Tremor [Unknown]
  - Injection site erythema [Unknown]
  - Blood chloride decreased [Unknown]
  - Blood creatinine increased [Unknown]
  - Chills [Unknown]
  - Amnesia [Unknown]
  - Blood urea increased [Unknown]
  - Lumbar spinal stenosis [Unknown]
  - Sleep apnoea syndrome [Unknown]
  - Influenza like illness [Unknown]
  - Oesophageal spasm [Unknown]
  - Injection site mass [Unknown]
  - Gastrooesophageal reflux disease [Unknown]
  - Hypertension [Unknown]
  - Hepatic steatosis [Not Recovered/Not Resolved]
  - Peripheral venous disease [Unknown]
  - Liver function test increased [Unknown]
  - Low density lipoprotein increased [Unknown]
  - Varicella [Unknown]
  - Hypersensitivity [Recovered/Resolved]
  - Asthma [Unknown]
  - Osteoarthritis [Unknown]

NARRATIVE: CASE EVENT DATE: 20171122
